FAERS Safety Report 4618828-1 (Version None)
Quarter: 2005Q1

REPORT INFORMATION
  Report Type: 
  Country: None (occurrence: None)
  Receive Date: 20050323
  Receipt Date: 20050304
  Transmission Date: 20050727
  Serious: Yes (Hospitalization, Other)
  Sender: FDA-Public Use
  Company Number: USA050392398

PATIENT
  Age: 50 Year
  Sex: Female

DRUGS (1)
  1. HUMULIN R [Suspect]
     Dosage: 125 U/ 2 DAY

REACTIONS (7)
  - ANAEMIA [None]
  - ASTHMA [None]
  - CUSHINGOID [None]
  - DEPRESSION [None]
  - MEDICATION ERROR [None]
  - OBESITY [None]
  - PANCREATITIS CHRONIC [None]
